APPROVED DRUG PRODUCT: NELARABINE
Active Ingredient: NELARABINE
Strength: 250MG/50ML (5MG/ML)
Dosage Form/Route: INJECTABLE;INTRAVENOUS
Application: A216346 | Product #001 | TE Code: AP
Applicant: AMNEAL EU LTD
Approved: Apr 4, 2023 | RLD: No | RS: No | Type: RX